FAERS Safety Report 16939907 (Version 1)
Quarter: 2019Q4

REPORT INFORMATION
  Report Type: Spontaneous
  Country: US (occurrence: US)
  Receive Date: 20191021
  Receipt Date: 20191021
  Transmission Date: 20200122
  Serious: Yes (Other)
  Sender: FDA-Public Use
  Company Number: US-NOVOPROD-691162

PATIENT
  Age: 21 Year
  Sex: Female

DRUGS (2)
  1. ESTRADIOL. [Suspect]
     Active Substance: ESTRADIOL
     Indication: TRANSGENDER HORMONAL THERAPY
     Dosage: UNK
     Route: 065
  2. SPIRONOLACTONE. [Concomitant]
     Active Substance: SPIRONOLACTONE
     Indication: TRANSGENDER HORMONAL THERAPY
     Dosage: UNK
     Route: 065
     Dates: start: 2016

REACTIONS (4)
  - Gender dysphoria [Unknown]
  - Off label use [Unknown]
  - Condition aggravated [Unknown]
  - Suicidal ideation [Unknown]
